FAERS Safety Report 14314553 (Version 1)
Quarter: 2017Q4

REPORT INFORMATION
  Report Type: Report from Study
  Country: CO (occurrence: CO)
  Receive Date: 20171221
  Receipt Date: 20171221
  Transmission Date: 20180321
  Serious: Yes (Other)
  Sender: FDA-Public Use
  Company Number: CO-UCBSA-2017050898

PATIENT

DRUGS (3)
  1. LEVETIRACETAM. [Suspect]
     Active Substance: LEVETIRACETAM
     Indication: EPILEPSY
     Dosage: UNKNOWN DOSE
  2. LACOSAMIDE. [Suspect]
     Active Substance: LACOSAMIDE
     Indication: EPILEPSY
     Dosage: UNKNOWN DOSE
  3. CLOBAZAM [Suspect]
     Active Substance: CLOBAZAM
     Indication: EPILEPSY
     Dosage: UNKNOWN DOSE

REACTIONS (18)
  - Fatigue [Unknown]
  - Headache [Unknown]
  - Insomnia [Unknown]
  - Affect lability [Unknown]
  - Agitation [Unknown]
  - Dizziness [Unknown]
  - Hyperkinesia [Unknown]
  - Irritability [Unknown]
  - Alopecia [Unknown]
  - Nausea [None]
  - Hostility [Unknown]
  - Rash [None]
  - Disturbance in attention [Unknown]
  - Memory impairment [Unknown]
  - Myalgia [Unknown]
  - Pruritus [Unknown]
  - Thrombocytopenia [Unknown]
  - Tremor [Unknown]
